FAERS Safety Report 21513345 (Version 1)
Quarter: 2022Q4

REPORT INFORMATION
  Report Type: Spontaneous
  Country: KW (occurrence: None)
  Receive Date: 20221027
  Receipt Date: 20221027
  Transmission Date: 20230113
  Serious: Yes (Disabling)
  Sender: FDA-Public Use
  Company Number: None

PATIENT
  Age: 25 Year
  Sex: Female
  Weight: 55 kg

DRUGS (2)
  1. ALIROCUMAB [Suspect]
     Active Substance: ALIROCUMAB
     Indication: Type IIa hyperlipidaemia
     Dosage: 150 MG ONCE EVERY 2 WEEKS SUBCUTANEOUS?
     Route: 058
     Dates: start: 20220701
  2. Alirocumab injection 150mg [Concomitant]
     Dates: start: 20220701

REACTIONS (1)
  - Injection site plaque [None]

NARRATIVE: CASE EVENT DATE: 20220923
